FAERS Safety Report 8062775-2 (Version None)
Quarter: 2012Q1

REPORT INFORMATION
  Report Type: 
  Country: None (occurrence: None)
  Receive Date: 20120123
  Receipt Date: 20120109
  Transmission Date: 20120608
  Serious: Yes (Hospitalization, Other)
  Sender: FDA-Public Use
  Company Number: SI-ELI_LILLY_AND_COMPANY-SI201201002608

PATIENT
  Sex: Male

DRUGS (4)
  1. OLANZAPINE [Suspect]
     Dosage: 300 MG, MONTHLY (1/M)
     Dates: start: 20111221
  2. OLANZAPINE [Suspect]
     Dosage: 5 MG, UNK
  3. OLANZAPINE [Suspect]
     Indication: PSYCHOTIC DISORDER
     Dosage: 210 MG, EVERY TWO WEEKS
     Route: 030
     Dates: start: 20111208
  4. ESCITALOPRAM [Concomitant]
     Indication: DEPRESSION
     Dosage: 10 MG, QD

REACTIONS (2)
  - SEDATION [None]
  - PSYCHOTIC DISORDER [None]
